FAERS Safety Report 7409542-8 (Version None)
Quarter: 2011Q2

REPORT INFORMATION
  Report Type: 
  Country: None (occurrence: None)
  Receive Date: 20110412
  Receipt Date: 20110407
  Transmission Date: 20111010
  Serious: Yes (Other)
  Sender: FDA-Public Use
  Company Number: FR-MERCK-1104FRA00039

PATIENT
  Age: 43 Year
  Sex: Male

DRUGS (4)
  1. DARUNAVIR [Concomitant]
     Indication: HIV INFECTION
     Route: 065
     Dates: start: 20100706, end: 20110316
  2. RITONAVIR [Concomitant]
     Indication: HIV INFECTION
     Route: 065
     Dates: start: 20100706, end: 20110316
  3. ISENTRESS [Suspect]
     Indication: HIV INFECTION
     Route: 048
     Dates: start: 20000315, end: 20110322
  4. EMTRICITABINE AND TENOFOVIR DISOPROXIL FUMARATE [Concomitant]
     Indication: HIV INFECTION
     Route: 065
     Dates: start: 20100706

REACTIONS (4)
  - NIGHTMARE [None]
  - SUICIDAL IDEATION [None]
  - PAIN IN EXTREMITY [None]
  - INSOMNIA [None]
